FAERS Safety Report 9075934 (Version 1)
Quarter: 2013Q1

REPORT INFORMATION
  Report Type: Report from Study
  Country: JP (occurrence: JP)
  Receive Date: 20130129
  Receipt Date: 20130129
  Transmission Date: 20140127
  Serious: Yes (Other)
  Sender: FDA-Public Use
  Company Number: JP-GILEAD-2013-0068656

PATIENT
  Age: 50 Year
  Sex: Female

DRUGS (11)
  1. AMBRISENTAN [Suspect]
     Indication: PULMONARY ARTERIAL HYPERTENSION
     Dosage: 5MG PER DAY
     Route: 048
     Dates: start: 20111116, end: 20120112
  2. ADCIRCA [Concomitant]
     Indication: PULMONARY ARTERIAL HYPERTENSION
     Route: 048
  3. WARFARIN [Concomitant]
     Indication: PULMONARY ARTERIAL HYPERTENSION
     Route: 048
  4. PREDONINE                          /00016201/ [Concomitant]
     Route: 048
  5. GASTER D [Concomitant]
     Route: 048
  6. BONALON [Concomitant]
     Route: 048
  7. SELBEX [Concomitant]
     Route: 048
  8. LENDORMIN [Concomitant]
     Route: 048
  9. DEPAS [Concomitant]
     Route: 048
  10. DOGMATYL [Concomitant]
     Route: 048
  11. FERROMIA                           /00023520/ [Concomitant]
     Route: 048
     Dates: start: 20111215, end: 20120112

REACTIONS (2)
  - Interstitial lung disease [Recovered/Resolved]
  - White blood cell count decreased [Recovered/Resolved]
